FAERS Safety Report 4564347-0 (Version None)
Quarter: 2005Q1

REPORT INFORMATION
  Report Type: 
  Country: None (occurrence: None)
  Receive Date: 20050128
  Receipt Date: 20050120
  Transmission Date: 20050727
  Serious: Yes (Other)
  Sender: FDA-Public Use
  Company Number: US-GLAXOSMITHKLINE-A0541554A

PATIENT
  Age: 49 Year
  Sex: Male

DRUGS (2)
  1. WELLBUTRIN [Suspect]
     Indication: DEPRESSION
     Route: 048
     Dates: start: 20050113
  2. XANAX [Concomitant]
     Indication: PANIC ATTACK

REACTIONS (5)
  - FEELING ABNORMAL [None]
  - FEELING OF DESPAIR [None]
  - MEDICATION ERROR [None]
  - PANIC ATTACK [None]
  - SUICIDAL IDEATION [None]
